FAERS Safety Report 8521803-8 (Version None)
Quarter: 2012Q3

REPORT INFORMATION
  Report Type: 
  Country: None (occurrence: None)
  Receive Date: 20120719
  Receipt Date: 20120522
  Transmission Date: 20120928
  Serious: No
  Sender: FDA-Public Use
  Company Number: US-BRISTOL-MYERS SQUIBB COMPANY-16487860

PATIENT
  Age: 83 Year
  Sex: Male

DRUGS (11)
  1. AMIODARONE HCL [Concomitant]
  2. ATENOLOL [Concomitant]
  3. MAGNESIUM HYDROXIDE TAB [Concomitant]
  4. SYNTHROID [Concomitant]
  5. VITAMIN B-12 [Concomitant]
     Dosage: TABS
  6. YERVOY [Suspect]
     Indication: MALIGNANT MELANOMA
     Dosage: IVBP,THERAPY DATES:6MAR12,2 INF ON 27MAR2012
     Route: 042
     Dates: start: 20120306
  7. VICODIN [Concomitant]
  8. LASIX [Concomitant]
  9. VITAMIN B COMPLEX CAP [Concomitant]
  10. LISINOPRIL [Concomitant]
  11. ALLOPURINOL [Concomitant]

REACTIONS (6)
  - PRURITUS [None]
  - DIARRHOEA [None]
  - VISION BLURRED [None]
  - EYE PRURITUS [None]
  - DYSPNOEA [None]
  - FATIGUE [None]
